FAERS Safety Report 25184961 (Version 1)
Quarter: 2025Q2

REPORT INFORMATION
  Report Type: Spontaneous
  Country: US (occurrence: US)
  Receive Date: 20250410
  Receipt Date: 20250410
  Transmission Date: 20250717
  Serious: Yes (Other)
  Sender: DR REDDYS
  Company Number: None

PATIENT
  Age: 18 Year
  Sex: Female

DRUGS (7)
  1. OLANZAPINE [Suspect]
     Active Substance: OLANZAPINE
     Indication: Psychotic disorder
     Dates: start: 2020, end: 2020
  2. OLANZAPINE [Suspect]
     Active Substance: OLANZAPINE
     Indication: Catatonia
     Dosage: INCREASED TO 5 MG ON THE THIRD DAY
     Dates: start: 2020, end: 2020
  3. OLANZAPINE [Suspect]
     Active Substance: OLANZAPINE
     Dosage: INCREASED TO 10 MG ON DAY 5
     Dates: start: 2020, end: 2020
  4. OLANZAPINE [Suspect]
     Active Substance: OLANZAPINE
     Dosage: INCREASED TO 15 MG ON DAY 11
     Dates: start: 2020, end: 2020
  5. OLANZAPINE [Suspect]
     Active Substance: OLANZAPINE
     Dosage: TITRATED TO 20 MG DAILY ON DAY 14
     Dates: start: 2020, end: 2020
  6. OLANZAPINE [Suspect]
     Active Substance: OLANZAPINE
     Dosage: DECREASED TO 10 MG DAILY 2 WEEKS AFTER DISCHARGE
     Dates: start: 2020, end: 2020
  7. OLANZAPINE [Suspect]
     Active Substance: OLANZAPINE
     Dosage: DECREASED TO 5 MG 2-3 MONTHS LATER AFTER DISCHARGE
     Dates: start: 2020, end: 2020

REACTIONS (4)
  - Weight increased [Recovering/Resolving]
  - Neutropenia [Unknown]
  - Sedation complication [Recovering/Resolving]
  - Menstruation irregular [Recovered/Resolved]

NARRATIVE: CASE EVENT DATE: 20200101
